FAERS Safety Report 6086162-1 (Version None)
Quarter: 2009Q1

REPORT INFORMATION
  Report Type: 
  Country: None (occurrence: None)
  Receive Date: 20090217
  Receipt Date: 20090217
  Transmission Date: 20090719
  Serious: Yes (Disabling)
  Sender: FDA-Public Use
  Company Number: None

PATIENT
  Sex: Male
  Weight: 3.402 kg

DRUGS (1)
  1. VITAMIN K1 [Suspect]
     Indication: VITAMIN SUPPLEMENTATION
     Dosage: GIVE 1ML=25MCG DAILY PO
     Route: 048
     Dates: start: 20090202, end: 20090205

REACTIONS (2)
  - CYANOSIS [None]
  - JAUNDICE [None]
